FAERS Safety Report 13890336 (Version 1)
Quarter: 2017Q3

REPORT INFORMATION
  Report Type: Spontaneous
  Country: US (occurrence: US)
  Receive Date: 20170822
  Receipt Date: 20170822
  Transmission Date: 20171127
  Serious: No
  Sender: FDA-Public Use
  Company Number: US-JNJFOC-20170813621

PATIENT
  Age: 23 Year
  Sex: Male
  Weight: 72.58 kg

DRUGS (1)
  1. INVEGA SUSTENNA [Suspect]
     Active Substance: PALIPERIDONE PALMITATE
     Indication: SCHIZOPHRENIA
     Route: 030
     Dates: start: 20170628

REACTIONS (5)
  - Drug dose omission [Unknown]
  - Hallucination [Unknown]
  - Abnormal behaviour [Unknown]
  - Weight increased [Unknown]
  - Aggression [Unknown]

NARRATIVE: CASE EVENT DATE: 20170728
